FAERS Safety Report 20702667 (Version 1)
Quarter: 2022Q2

REPORT INFORMATION
  Report Type: Spontaneous
  Country: US (occurrence: US)
  Receive Date: 20220412
  Receipt Date: 20220412
  Transmission Date: 20220721
  Serious: No
  Sender: FDA-Public Use
  Company Number: US-PFIZER INC-202101151512

PATIENT
  Age: 23 Year
  Sex: Female
  Weight: 81.633 kg

DRUGS (2)
  1. LIDOCAINE HYDROCHLORIDE [Suspect]
     Active Substance: LIDOCAINE HYDROCHLORIDE
     Dosage: IV PUSH
     Route: 042
     Dates: start: 20210728, end: 20210728
  2. LIDOCAINE [Concomitant]
     Active Substance: LIDOCAINE
     Dosage: 0.5 TO 1 CC, DAILY
     Dates: end: 20210729

REACTIONS (2)
  - Rash [Unknown]
  - Pruritus [Unknown]
